FAERS Safety Report 5569911-8 (Version None)
Quarter: 2007Q4

REPORT INFORMATION
  Report Type: 
  Country: None (occurrence: None)
  Receive Date: 20071218
  Receipt Date: 20071207
  Transmission Date: 20080405
  Serious: Yes (Other)
  Sender: FDA-Public Use
  Company Number: OMPQ-NO-0712S-1373

PATIENT
  Sex: Female

DRUGS (4)
  1. OMNIPAQUE 300 [Suspect]
     Indication: DRUG USE FOR UNKNOWN INDICATION
     Dosage: SINGLE DOSE
     Dates: start: 20071203, end: 20071203
  2. SULFASALAZINE (SALAZOPYRIN) [Concomitant]
  3. LACTOBACILLUS  BIFIDUS (LAC B) [Concomitant]
  4. FERROUS CITRATE [Concomitant]

REACTIONS (4)
  - LIVER DISORDER [None]
  - LIVER FUNCTION TEST ABNORMAL [None]
  - NEUTROPHIL COUNT DECREASED [None]
  - WHITE BLOOD CELL COUNT DECREASED [None]
